FAERS Safety Report 6027914-3 (Version None)
Quarter: 2009Q1

REPORT INFORMATION
  Report Type: 
  Country: None (occurrence: None)
  Receive Date: 20090105
  Receipt Date: 20081223
  Transmission Date: 20090719
  Serious: Yes (Hospitalization)
  Sender: FDA-Public Use
  Company Number: GB-AMGEN-US311363

PATIENT
  Sex: Female

DRUGS (8)
  1. ENBREL [Suspect]
     Indication: DRUG USE FOR UNKNOWN INDICATION
     Route: 058
     Dates: start: 20080103
  2. ASPIRIN [Concomitant]
     Indication: MYOCARDIAL ISCHAEMIA
     Dosage: 75MG, FREQUENCY UNSPECIFIED
     Route: 048
  3. DIAZEPAM [Concomitant]
     Dosage: 2MG, FREQUENCY UNSPECIFIED
     Route: 048
  4. LANSOPRAZOLE [Concomitant]
     Indication: GASTRITIS
     Dosage: UNKNOWN
     Route: 048
  5. SIMVASTATIN [Concomitant]
     Dosage: UNKNOWN
     Route: 048
  6. BISOPROLOL FUMARATE [Concomitant]
     Dosage: UNKNOWN
     Route: 048
     Dates: start: 20020101
  7. SULFASALAZINE [Concomitant]
     Indication: RHEUMATOID ARTHRITIS
     Route: 048
  8. LEVOTHYROXINE [Concomitant]
     Dosage: UNKNOWN
     Route: 048

REACTIONS (1)
  - PELVIC MASS [None]
